FAERS Safety Report 9006770 (Version 2)
Quarter: 2013Q2

REPORT INFORMATION
  Report Type: Spontaneous
  Country: US (occurrence: None)
  Receive Date: 20120517
  Receipt Date: 20120830
  Transmission Date: 20140414
  Serious: Yes (Other)
  Sender: FDA-Public Use
  Company Number: PHHY2011US41594

PATIENT
  Age: 64 Year
  Sex: Female

DRUGS (7)
  1. SANDOSTATIN LAR DEPOT (OCTREOTIDE WITH POLY(D L-LACTIDE-CO-GLYCOLIDE)) SUSPENSION [Suspect]
     Indication: COLON CANCER
     Dosage: QMO?
     Dates: start: 2004
  2. LORAZEPAM (LORAZEPAM) [Concomitant]
  3. VICODIN (HYDROCODONE BITARTRATE, PARACETAMOL) [Concomitant]
  4. LISINOPRIL (LISINOPRIL) [Concomitant]
  5. POTASSIUM (POTASSIUM) [Concomitant]
  6. ESTRADIOL (ESTRADIOL) [Concomitant]
  7. METOPROLOL TARTRATE (METOPROLOL TARTRATE) [Concomitant]

REACTIONS (4)
  - Metastases to liver [None]
  - Blood pressure increased [None]
  - Asthenia [None]
  - Headache [None]
